FAERS Safety Report 21440512 (Version 1)
Quarter: 2022Q4

REPORT INFORMATION
  Report Type: Spontaneous
  Country: US (occurrence: None)
  Receive Date: 20221009
  Receipt Date: 20221009
  Transmission Date: 20230113
  Serious: Yes (Other)
  Sender: FDA-Public Use
  Company Number: None

PATIENT
  Age: 85 Year
  Sex: Male
  Weight: 76.5 kg

DRUGS (3)
  1. DUREZOL [Suspect]
     Active Substance: DIFLUPREDNATE
     Indication: Keratitis
     Dosage: FREQUENCY : EVERY 4 HOURS;?
     Route: 047
  2. TIMOLOL [Concomitant]
     Active Substance: TIMOLOL
  3. BRIMONIDINE [Concomitant]
     Active Substance: BRIMONIDINE TARTRATE

REACTIONS (1)
  - Blindness [None]

NARRATIVE: CASE EVENT DATE: 20200803
